FAERS Safety Report 6313182-1 (Version None)
Quarter: 2009Q3

REPORT INFORMATION
  Report Type: 
  Country: None (occurrence: None)
  Receive Date: 20090814
  Receipt Date: 20090814
  Transmission Date: 20100115
  Serious: No
  Sender: FDA-Public Use
  Company Number: None

PATIENT
  Sex: Male
  Weight: 86.1834 kg

DRUGS (1)
  1. PROSED/DS TARGET [Suspect]
     Indication: BIOPSY BLADDER
     Dosage: 3 A DAY EVERY 8 HOURS
     Dates: start: 20090710, end: 20090711

REACTIONS (5)
  - DEFAECATION URGENCY [None]
  - DIARRHOEA [None]
  - DYSURIA [None]
  - URINE ANALYSIS ABNORMAL [None]
  - URINE OUTPUT DECREASED [None]
